FAERS Safety Report 15680876 (Version 1)
Quarter: 2018Q4

REPORT INFORMATION
  Report Type: Spontaneous
  Country: US (occurrence: US)
  Receive Date: 20181202
  Receipt Date: 20181202
  Transmission Date: 20190205
  Serious: Yes (Other)
  Sender: FDA-Public Use
  Company Number: None

PATIENT
  Age: 39 Year
  Sex: Female
  Weight: 81 kg

DRUGS (1)
  1. LYSTEDA [Suspect]
     Active Substance: TRANEXAMIC ACID
     Indication: HAEMORRHAGE
     Route: 048
     Dates: start: 20181122, end: 20181126

REACTIONS (6)
  - Pyrexia [None]
  - Abdominal pain [None]
  - Arthralgia [None]
  - Myalgia [None]
  - Chills [None]
  - Pain [None]

NARRATIVE: CASE EVENT DATE: 20181130
